FAERS Safety Report 15415606 (Version 5)
Quarter: 2020Q2

REPORT INFORMATION
  Report Type: Report from Study
  Country: US (occurrence: US)
  Receive Date: 20180922
  Receipt Date: 20200414
  Transmission Date: 20200713
  Serious: Yes (Hospitalization, Other)
  Sender: FDA-Public Use
  Company Number: PHHY2018US104472

PATIENT
  Age: 47 Year
  Sex: Female

DRUGS (3)
  1. AFINITOR [Suspect]
     Active Substance: EVEROLIMUS
     Indication: ANGIOMYOLIPOMA
     Dosage: 5 MG, QD
     Route: 051
     Dates: start: 20180505
  2. AFINITOR [Suspect]
     Active Substance: EVEROLIMUS
     Dosage: 2.5 MG, QOD (EVERY OTHER DAY)
     Route: 048
  3. AFINITOR [Suspect]
     Active Substance: EVEROLIMUS
     Dosage: 5 MG, QOD (EVERY OTHER DAY)
     Route: 048
     Dates: end: 20190215

REACTIONS (9)
  - Pyrexia [Unknown]
  - Blood triglycerides increased [Unknown]
  - Menstruation irregular [Unknown]
  - Alveolar osteitis [Recovered/Resolved]
  - Incorrect route of product administration [Unknown]
  - Blood glucose increased [Unknown]
  - Renal tubular atrophy [Unknown]
  - Renal impairment [Unknown]
  - Haemorrhage [Unknown]

NARRATIVE: CASE EVENT DATE: 20180512
